FAERS Safety Report 4971663-7 (Version None)
Quarter: 2006Q2

REPORT INFORMATION
  Report Type: 
  Country: None (occurrence: None)
  Receive Date: 20060413
  Receipt Date: 20060330
  Transmission Date: 20061013
  Serious: Yes (Hospitalization)
  Sender: FDA-Public Use
  Company Number: FR-AVENTIS-200611161FR

PATIENT
  Age: 38 Year
  Sex: Male
  Weight: 54 kg

DRUGS (10)
  1. TAXOTERE [Suspect]
     Indication: ADENOCARCINOMA
     Dates: start: 20060223, end: 20060223
  2. LAROXYL [Suspect]
     Indication: DRUG USE FOR UNKNOWN INDICATION
  3. MOPRAL [Suspect]
     Indication: DRUG USE FOR UNKNOWN INDICATION
  4. ZOPHREN [Suspect]
     Indication: DRUG USE FOR UNKNOWN INDICATION
  5. PARACETAMOL [Suspect]
     Indication: DRUG USE FOR UNKNOWN INDICATION
  6. OXYCONTIN [Suspect]
     Indication: DRUG USE FOR UNKNOWN INDICATION
  7. STILNOX [Concomitant]
     Indication: DRUG USE FOR UNKNOWN INDICATION
     Route: 042
     Dates: start: 20060223, end: 20060223
  8. FORLAX [Concomitant]
     Indication: DRUG USE FOR UNKNOWN INDICATION
  9. RIVOTRIL [Concomitant]
     Indication: DRUG USE FOR UNKNOWN INDICATION
  10. SOLU-MEDROL [Concomitant]

REACTIONS (4)
  - BACK PAIN [None]
  - CHILLS [None]
  - HYPERHIDROSIS [None]
  - PALLOR [None]
